FAERS Safety Report 19630520 (Version 2)
Quarter: 2021Q3

REPORT INFORMATION
  Report Type: Spontaneous
  Country: US (occurrence: US)
  Receive Date: 20210729
  Receipt Date: 20210908
  Transmission Date: 20211014
  Serious: No
  Sender: FDA-Public Use
  Company Number: US-PFIZER INC-2021821328

PATIENT
  Age: 11 Year
  Sex: Female
  Weight: 34.02 kg

DRUGS (2)
  1. GENOTROPIN [Suspect]
     Active Substance: SOMATROPIN
     Dosage: 1.8 MG INJECTED INTO BUTT, DAILY EVERY NIGHT
     Dates: start: 202106
  2. GENOTROPIN [Suspect]
     Active Substance: SOMATROPIN
     Indication: GROWTH HORMONE DEFICIENCY
     Dosage: 1.6 MG INJECTED INTO BUTT, DAILY EVERY NIGHT
     Dates: start: 2015

REACTIONS (5)
  - Device physical property issue [Unknown]
  - Wrong technique in device usage process [Unknown]
  - Poor quality device used [Recovered/Resolved]
  - Drug dose omission by device [Unknown]
  - Device information output issue [Not Recovered/Not Resolved]

NARRATIVE: CASE EVENT DATE: 2021
